FAERS Safety Report 10143784 (Version 1)
Quarter: 2014Q2

REPORT INFORMATION
  Report Type: Spontaneous
  Country: US (occurrence: US)
  Receive Date: 20140430
  Receipt Date: 20140430
  Transmission Date: 20141212
  Serious: Yes (Hospitalization)
  Sender: FDA-Public Use
  Company Number: US-GLAXOSMITHKLINE-A1070500A

PATIENT
  Age: 67 Year
  Sex: Male

DRUGS (3)
  1. ADVAIR [Suspect]
     Indication: CHRONIC OBSTRUCTIVE PULMONARY DISEASE
     Dosage: 1PUFF TWICE PER DAY
     Route: 055
     Dates: start: 2004
  2. ANTIBIOTIC [Suspect]
     Indication: MACULAR DEGENERATION
  3. METFORMIN [Concomitant]

REACTIONS (6)
  - Age-related macular degeneration [Recovering/Resolving]
  - Prostate cancer [Recovered/Resolved]
  - Prostatectomy [Recovered/Resolved]
  - Vision blurred [Recovering/Resolving]
  - Eye irritation [Recovered/Resolved]
  - Abnormal sensation in eye [Recovering/Resolving]
